FAERS Safety Report 11612189 (Version 1)
Quarter: 2015Q4

REPORT INFORMATION
  Report Type: Report from Study
  Country: US (occurrence: US)
  Receive Date: 20151008
  Receipt Date: 20151008
  Transmission Date: 20160304
  Serious: Yes (Hospitalization, Other)
  Sender: FDA-Public Use
  Company Number: US-GILEAD-2015-0175665

PATIENT
  Age: 63 Year
  Sex: Female

DRUGS (3)
  1. AMBRISENTAN [Suspect]
     Active Substance: AMBRISENTAN
     Indication: PRODUCT USED FOR UNKNOWN INDICATION
     Dosage: 5 MG, QD
     Route: 065
     Dates: start: 20150812
  2. GLEEVEC [Concomitant]
     Active Substance: IMATINIB MESYLATE
  3. ADCIRCA [Concomitant]
     Active Substance: TADALAFIL

REACTIONS (1)
  - Pulmonary arterial hypertension [Unknown]
